FAERS Safety Report 21308785 (Version 1)
Quarter: 2022Q3

REPORT INFORMATION
  Report Type: Spontaneous
  Country: US (occurrence: None)
  Receive Date: 20220908
  Receipt Date: 20220908
  Transmission Date: 20221027
  Serious: Yes (Other)
  Sender: FDA-Public Use
  Company Number: None

PATIENT
  Age: 21 Year
  Sex: Female
  Weight: 59.10 kg

DRUGS (3)
  1. HALOPERIDOL [Suspect]
     Active Substance: HALOPERIDOL
     Indication: Hallucination, auditory
     Dosage: FREQUENCY : TWICE A DAY;?
     Route: 048
  2. MIRTAZAPINE [Concomitant]
     Active Substance: MIRTAZAPINE
  3. ESCITALOPRAM [Concomitant]
     Active Substance: ESCITALOPRAM OXALATE

REACTIONS (7)
  - Hallucination, auditory [None]
  - Condition aggravated [None]
  - Drug ineffective [None]
  - Eye movement disorder [None]
  - Headache [None]
  - Dystonia [None]
  - Extrapyramidal disorder [None]

NARRATIVE: CASE EVENT DATE: 20220705
